FAERS Safety Report 7378258-9 (Version None)
Quarter: 2011Q1

REPORT INFORMATION
  Report Type: 
  Country: None (occurrence: None)
  Receive Date: 20110328
  Receipt Date: 20110321
  Transmission Date: 20110831
  Serious: Yes (Hospitalization)
  Sender: FDA-Public Use
  Company Number: B0708741A

PATIENT
  Sex: Female

DRUGS (2)
  1. TRIATEC HCT [Concomitant]
     Route: 065
     Dates: start: 20110101, end: 20110305
  2. AMOXICILLIN AND CLAVULANATE POTASSIUM [Suspect]
     Dosage: 2G PER DAY
     Route: 048
     Dates: start: 20110304, end: 20110305

REACTIONS (2)
  - OEDEMA PERIPHERAL [None]
  - PRURITUS [None]
